FAERS Safety Report 5872884-1 (Version None)
Quarter: 2008Q3

REPORT INFORMATION
  Report Type: 
  Country: None (occurrence: None)
  Receive Date: 20080905
  Receipt Date: 20080828
  Transmission Date: 20090109
  Serious: Yes (Life-Threatening, Hospitalization)
  Sender: FDA-Public Use
  Company Number: AT-PFIZER INC-2008066164

PATIENT
  Sex: Male
  Weight: 86 kg

DRUGS (5)
  1. SU-011,248 [Suspect]
     Indication: PROSTATE CANCER
     Route: 048
  2. DOCETAXEL [Suspect]
     Indication: PROSTATE CANCER
  3. PANTOPRAZOLE [Concomitant]
     Route: 048
  4. METOCLOPRAMIDE [Concomitant]
     Route: 048
  5. LOPERAMIDE HCL [Concomitant]
     Route: 048

REACTIONS (1)
  - MYOCARDIAL INFARCTION [None]
